FAERS Safety Report 5163639-4 (Version None)
Quarter: 2006Q4

REPORT INFORMATION
  Report Type: 
  Country: None (occurrence: None)
  Receive Date: 20061124
  Receipt Date: 20061113
  Transmission Date: 20070319
  Serious: Yes (Other)
  Sender: FDA-Public Use
  Company Number: 2006142145

PATIENT
  Age: 63 Year
  Sex: Female
  Weight: 74.8435 kg

DRUGS (5)
  1. CHANTIX [Suspect]
     Indication: SMOKING CESSATION THERAPY
     Dosage: 1 MG (0.5 MG, 2 IN 1 D)
     Dates: start: 20061105, end: 20061113
  2. PREDNISONE TAB [Suspect]
     Indication: EYE DISORDER
     Dates: start: 20061111
  3. MIRAPEX [Concomitant]
  4. TAPAZOLE [Concomitant]
  5. AMITRIPTYLINE HCL [Concomitant]

REACTIONS (5)
  - CONDITION AGGRAVATED [None]
  - EXTRASYSTOLES [None]
  - EYE DISORDER [None]
  - HEADACHE [None]
  - HEART RATE INCREASED [None]
